FAERS Safety Report 10069881 (Version 2)
Quarter: 2014Q2

REPORT INFORMATION
  Report Type: Spontaneous
  Country: US (occurrence: US)
  Receive Date: 20140410
  Receipt Date: 20140529
  Transmission Date: 20141212
  Serious: Yes (Other)
  Sender: FDA-Public Use
  Company Number: US-TEVA-474114USA

PATIENT
  Sex: 0

DRUGS (1)
  1. FLUVASTATIN [Suspect]

REACTIONS (2)
  - Macular degeneration [Unknown]
  - Product physical issue [Unknown]
